FAERS Safety Report 5196374-7 (Version None)
Quarter: 2006Q4

REPORT INFORMATION
  Report Type: 
  Country: None (occurrence: None)
  Receive Date: 20061222
  Receipt Date: 20061221
  Transmission Date: 20070319
  Serious: Yes (Hospitalization)
  Sender: FDA-Public Use
  Company Number: CFNT Y-15 3

PATIENT
  Age: 27 Year
  Sex: Female

DRUGS (1)
  1. CEFDITOREN PIVOXIL 300MG [Suspect]
     Indication: SINUSITIS
     Dosage: 300MG/DAY ORAL
     Route: 048
     Dates: start: 20060722, end: 20060727

REACTIONS (1)
  - STEVENS-JOHNSON SYNDROME [None]
